FAERS Safety Report 8108548 (Version 6)
Quarter: 2014Q1

REPORT INFORMATION
  Report Type: Spontaneous
  Country: US (occurrence: US)
  Receive Date: 20110826
  Receipt Date: 20140130
  Transmission Date: 20141002
  Serious: Yes (Death, Hospitalization)
  Sender: FDA-Public Use
  Company Number: US-B.I. PHARMACEUTICALS,INC./RIDGEFIELD-2011-BP-20670BP

PATIENT
  Age: 67 Year
  Sex: Male
  Weight: 104.33 kg

DRUGS (14)
  1. PRADAXA [Suspect]
     Indication: CEREBROVASCULAR ACCIDENT PROPHYLAXIS
     Dosage: 150 MG
     Route: 048
     Dates: start: 20110628, end: 20110702
  2. PRADAXA [Suspect]
     Indication: ATRIAL FIBRILLATION
  3. JANTOVEN (WAYFARIN) [Concomitant]
     Dosage: 10 MG
     Dates: end: 20110628
  4. NIACIN [Concomitant]
     Dosage: 500 MG
  5. POTASSIUM CHLORIDE [Concomitant]
     Dosage: 10 MEQ
     Dates: start: 200808
  6. TOPROL (METOPROLOL) [Concomitant]
     Dosage: 200 MG
  7. METFORMIN [Concomitant]
     Dosage: 1500 MG
  8. LISINOPRIL [Concomitant]
     Dosage: 10 MG
     Dates: start: 200808
  9. GLIMEPIRIDE [Concomitant]
     Dosage: 8 MG
     Dates: start: 20080822
  10. LIPITOR [Concomitant]
     Dosage: 20 MG
     Dates: start: 200808
  11. LASIX (FUROSEMIDE) [Concomitant]
     Dosage: 40 MG
     Dates: start: 200808
  12. ONGLYZA [Concomitant]
     Dosage: 5 MG
  13. LUTEIN [Concomitant]
     Dosage: 20 MG
  14. OMEGA 3 FISH OIL [Concomitant]
     Dosage: 200 MG

REACTIONS (2)
  - Cerebral haemorrhage [Fatal]
  - Plantar fasciitis [Unknown]
